FAERS Safety Report 9847998 (Version 1)
Quarter: 2014Q1

REPORT INFORMATION
  Report Type: Spontaneous
  Country: US (occurrence: None)
  Receive Date: 20140124
  Receipt Date: 20140124
  Transmission Date: 20141002
  Serious: No
  Sender: FDA-Public Use
  Company Number: None

PATIENT
  Age: 37 Year
  Sex: Female
  Weight: 62.14 kg

DRUGS (1)
  1. FLUTICASONE [Suspect]
     Indication: RHINITIS ALLERGIC
     Dosage: 2 SPRAYS EACH NOSTRIL ONCE DAILY INTO NOSTRIL
     Route: 045
     Dates: start: 20140110, end: 20140114

REACTIONS (2)
  - Temporomandibular joint syndrome [None]
  - Aphagia [None]
